FAERS Safety Report 17702535 (Version 3)
Quarter: 2021Q2

REPORT INFORMATION
  Report Type: Spontaneous
  Country: US (occurrence: US)
  Receive Date: 20200423
  Receipt Date: 20210415
  Transmission Date: 20210716
  Serious: Yes (Other)
  Sender: FDA-Public Use
  Company Number: US-PERRIGO-20US005768

PATIENT
  Age: 72 Year
  Sex: Female

DRUGS (4)
  1. PRILOSEC [Suspect]
     Active Substance: OMEPRAZOLE MAGNESIUM
     Indication: PRODUCT USED FOR UNKNOWN INDICATION
     Dosage: UNKNOWN, UNKNOWN
     Route: 048
  2. PREVACID [Suspect]
     Active Substance: LANSOPRAZOLE
     Indication: PRODUCT USED FOR UNKNOWN INDICATION
     Dosage: 15 MG, BID
     Route: 048
  3. PROTONIX [Suspect]
     Active Substance: PANTOPRAZOLE SODIUM
     Indication: PRODUCT USED FOR UNKNOWN INDICATION
     Dosage: 40 MG, QD
     Route: 065
     Dates: start: 20071008, end: 20080131
  4. PREVACID 24 HR [Suspect]
     Active Substance: LANSOPRAZOLE
     Indication: PRODUCT USED FOR UNKNOWN INDICATION
     Dosage: 15 MG, BID
     Route: 048
     Dates: start: 20100621, end: 20140226

REACTIONS (15)
  - Nephrosclerosis [Unknown]
  - Nephrolithiasis [Unknown]
  - Nephropathy [Unknown]
  - Urine abnormality [Unknown]
  - Chronic kidney disease [Unknown]
  - Renal vessel disorder [Unknown]
  - Renal artery arteriosclerosis [Unknown]
  - Urinary hesitation [Unknown]
  - Nephrogenic anaemia [Unknown]
  - Renal hypertension [Unknown]
  - Renal artery stenosis [Unknown]
  - Dysuria [Unknown]
  - Pollakiuria [Unknown]
  - Renal impairment [Unknown]
  - Diabetic nephropathy [Unknown]

NARRATIVE: CASE EVENT DATE: 200908
